FAERS Safety Report 23775129 (Version 1)
Quarter: 2024Q2

REPORT INFORMATION
  Report Type: Spontaneous
  Country: US (occurrence: None)
  Receive Date: 20240423
  Receipt Date: 20240423
  Transmission Date: 20240716
  Serious: Yes (Death, Hospitalization)
  Sender: FDA-Public Use
  Company Number: None

PATIENT
  Age: 80 Year
  Sex: Male

DRUGS (1)
  1. WARFARIN SODIUM [Suspect]
     Active Substance: WARFARIN SODIUM
     Dates: start: 20230201

REACTIONS (3)
  - Fall [None]
  - Rib fracture [None]
  - Retroperitoneal haematoma [None]

NARRATIVE: CASE EVENT DATE: 20230406
